FAERS Safety Report 7897265-0 (Version None)
Quarter: 2011Q4

REPORT INFORMATION
  Report Type: 
  Country: None (occurrence: None)
  Receive Date: 20111107
  Receipt Date: 20111102
  Transmission Date: 20120403
  Serious: Yes (Other)
  Sender: FDA-Public Use
  Company Number: US-VERTEX PHARMACEUTICALS INC.-AE-2011-002924

PATIENT
  Sex: Female

DRUGS (3)
  1. REBETOL SOLUTION [Concomitant]
     Indication: HEPATITIS C
     Dates: start: 20110101
  2. INCIVEK [Suspect]
     Indication: HEPATITIS C
     Dates: start: 20110101
  3. PEGASYS [Concomitant]
     Indication: HEPATITIS C
     Dates: start: 20110101

REACTIONS (1)
  - HAEMORRHAGE [None]
